FAERS Safety Report 9185134 (Version 1)
Quarter: 2013Q1

REPORT INFORMATION
  Report Type: Spontaneous
  Country: US (occurrence: US)
  Receive Date: 20130325
  Receipt Date: 20130325
  Transmission Date: 20140127
  Serious: No
  Sender: FDA-Public Use
  Company Number: US-009507513-1303USA009916

PATIENT
  Sex: Female

DRUGS (2)
  1. AZASITE [Suspect]
     Dosage: 1 GTT, QID
     Route: 047
  2. AZASITE [Suspect]
     Dosage: 1 GTT, BID
     Route: 047

REACTIONS (5)
  - Drug dose omission [Unknown]
  - Product packaging quantity issue [Unknown]
  - Product quality issue [Unknown]
  - Overdose [Unknown]
  - No adverse event [Unknown]
